FAERS Safety Report 6237809-8 (Version None)
Quarter: 2009Q2

REPORT INFORMATION
  Report Type: 
  Country: None (occurrence: None)
  Receive Date: 20090617
  Receipt Date: 20090601
  Transmission Date: 20091009
  Serious: Yes (Hospitalization)
  Sender: FDA-Public Use
  Company Number: 8044913

PATIENT
  Sex: Female
  Weight: 61.8 kg

DRUGS (2)
  1. KEPPRA [Suspect]
     Dosage: 500 MG 1/D PO
     Route: 048
  2. KEPPRA [Suspect]
     Dosage: 1000 MG 1/D PO
     Route: 048

REACTIONS (10)
  - ADDISON'S DISEASE [None]
  - CONTUSION [None]
  - GINGIVITIS [None]
  - LETHARGY [None]
  - MUSCLE SPASMS [None]
  - PERIORBITAL OEDEMA [None]
  - PHOTOPSIA [None]
  - RENAL PAIN [None]
  - SKIN HYPERPIGMENTATION [None]
  - WEIGHT DECREASED [None]
